FAERS Safety Report 16960185 (Version 1)
Quarter: 2019Q4

REPORT INFORMATION
  Report Type: Report from Study
  Country: CA (occurrence: CA)
  Receive Date: 20191025
  Receipt Date: 20191025
  Transmission Date: 20200122
  Serious: Yes (Other)
  Sender: FDA-Public Use
  Company Number: CA-ROCHE-2225446

PATIENT
  Age: 41 Year
  Sex: Female

DRUGS (7)
  1. ACYCLOVIR [ACICLOVIR] [Concomitant]
     Active Substance: ACYCLOVIR
     Dosage: YES
     Route: 065
     Dates: start: 2015
  2. RIZATRIPTAN. [Concomitant]
     Active Substance: RIZATRIPTAN
  3. TRAMADOL. [Concomitant]
     Active Substance: TRAMADOL
  4. HYDROMORPHONE [Concomitant]
     Active Substance: HYDROMORPHONE
  5. OCREVUS [Suspect]
     Active Substance: OCRELIZUMAB
     Indication: RELAPSING-REMITTING MULTIPLE SCLEROSIS
     Dosage: 300 MG AT DAY 0 AND 14, THEN 600 MG EVERY 6 MONTH.
     Route: 042
     Dates: start: 20181127
  6. GABAPENTIN. [Concomitant]
     Active Substance: GABAPENTIN
  7. TIZANIDINE. [Concomitant]
     Active Substance: TIZANIDINE

REACTIONS (13)
  - Pneumonia [Recovered/Resolved]
  - Ear infection [Recovered/Resolved]
  - Urinary tract infection [Recovered/Resolved]
  - Gastrointestinal infection [Unknown]
  - Sinusitis [Recovered/Resolved]
  - Abdominal distension [Not Recovered/Not Resolved]
  - Immunodeficiency [Unknown]
  - Nasopharyngitis [Recovering/Resolving]
  - Influenza like illness [Not Recovered/Not Resolved]
  - Abdominal pain [Not Recovered/Not Resolved]
  - Abdominal discomfort [Not Recovered/Not Resolved]
  - Infection [Unknown]
  - Lymphocyte count decreased [Unknown]

NARRATIVE: CASE EVENT DATE: 20181127
